FAERS Safety Report 6720605-2 (Version None)
Quarter: 2010Q2

REPORT INFORMATION
  Report Type: 
  Country: None (occurrence: None)
  Receive Date: 20100510
  Receipt Date: 20100422
  Transmission Date: 20101027
  Serious: Yes (Hospitalization, Other)
  Sender: FDA-Public Use
  Company Number: 015461

PATIENT
  Age: 76 Year
  Sex: Male

DRUGS (10)
  1. PRIALT [Suspect]
     Indication: NEUROPATHY PERIPHERAL
     Dosage: ONCE/HOUR, INTRATHECAL; 0.07 UG, ONCE/HOUR, INTRATHECAL; INTRATHECAL
     Route: 037
     Dates: end: 20100401
  2. PRIALT [Suspect]
     Indication: NEUROPATHY PERIPHERAL
     Dosage: ONCE/HOUR, INTRATHECAL; 0.07 UG, ONCE/HOUR, INTRATHECAL; INTRATHECAL
     Route: 037
     Dates: start: 20070101
  3. PRIALT [Suspect]
     Indication: NEUROPATHY PERIPHERAL
     Dosage: ONCE/HOUR, INTRATHECAL; 0.07 UG, ONCE/HOUR, INTRATHECAL; INTRATHECAL
     Route: 037
     Dates: start: 20100401
  4. CLONIDINE [Concomitant]
  5. METHADONE HCL [Concomitant]
  6. DILAUDID [Concomitant]
  7. BUPIVACAINE (BUPIVACAINE) [Concomitant]
  8. NEURONTIN [Concomitant]
  9. NEXIUM [Concomitant]
  10. BENICAR [Concomitant]

REACTIONS (8)
  - BURNING SENSATION [None]
  - DISEASE RECURRENCE [None]
  - MENTAL STATUS CHANGES [None]
  - MUSCLE SPASMS [None]
  - ORAL DISCOMFORT [None]
  - OROPHARYNGEAL BLISTERING [None]
  - PANCREATIC CARCINOMA [None]
  - PNEUMONIA [None]
